FAERS Safety Report 9052961 (Version 1)
Quarter: 2013Q1

REPORT INFORMATION
  Report Type: Spontaneous
  Country: JP (occurrence: JP)
  Receive Date: 20130208
  Receipt Date: 20130208
  Transmission Date: 20140127
  Serious: Yes (Hospitalization)
  Sender: FDA-Public Use
  Company Number: JP-009507513-1302JPN002547

PATIENT
  Sex: Female

DRUGS (2)
  1. GASTER [Suspect]
     Dosage: 20 MG, QD
  2. REMINYL [Concomitant]
     Indication: DEMENTIA
     Dosage: UNK, UNKNOWN
     Route: 048

REACTIONS (2)
  - Fracture [Unknown]
  - Fall [Unknown]
